FAERS Safety Report 17928163 (Version 3)
Quarter: 2020Q3

REPORT INFORMATION
  Report Type: Spontaneous
  Country: ES (occurrence: ES)
  Receive Date: 20200623
  Receipt Date: 20200706
  Transmission Date: 20201103
  Serious: Yes (Other)
  Sender: FDA-Public Use
  Company Number: ES-GLAXOSMITHKLINE-ES2020102966

PATIENT
  Age: 52 Year
  Sex: Male

DRUGS (11)
  1. HYALURONIC ACID [Concomitant]
     Active Substance: HYALURONIC ACID
     Indication: INTRAOPERATIVE CARE
     Dosage: 10 MG/ML INTO THE ANTERIOR CHAMBER
     Route: 065
  2. MITOMYCIN. [Suspect]
     Active Substance: MITOMYCIN
     Indication: INTRAOPERATIVE CARE
     Dosage: UNK, APPLIED FOR 90 S
     Route: 065
  3. MOXIFLOXACIN. [Suspect]
     Active Substance: MOXIFLOXACIN
     Indication: POSTOPERATIVE CARE
     Dosage: 0.1 ML, OF 5MG/ML
     Route: 031
     Dates: start: 201209, end: 201209
  4. MOXIFLOXACIN. [Suspect]
     Active Substance: MOXIFLOXACIN
     Indication: PROPHYLAXIS
     Dosage: 4 GTT, QD
     Route: 047
     Dates: start: 201209
  5. MOXIFLOXACIN. [Suspect]
     Active Substance: MOXIFLOXACIN
     Dosage: 1 DF, QID, 1 DF, Q6H, 5 MG/ML, QID
     Route: 065
  6. PREDNISOLONE ACETATE. [Suspect]
     Active Substance: PREDNISOLONE ACETATE
     Indication: POSTOPERATIVE CARE
     Dosage: UNK, 10 MG/ML (STARTING 6 TIMES DAILY AND TAPERED 1 DROP PER WEEK)
     Route: 065
     Dates: start: 2012
  7. PREDNISOLONE ACETATE. [Suspect]
     Active Substance: PREDNISOLONE ACETATE
     Dosage: UNK, 10 MG/ML, Q4H
     Route: 065
     Dates: start: 2012
  8. MITOMYCIN. [Suspect]
     Active Substance: MITOMYCIN
     Indication: OPEN ANGLE GLAUCOMA
     Dosage: UNK, 0.2 MG/ML
     Route: 057
     Dates: start: 201209, end: 201209
  9. DICLOFENAC SODIUM. [Suspect]
     Active Substance: DICLOFENAC SODIUM
     Indication: POSTOPERATIVE CARE
     Dosage: UNK, 1 MG/ML, TID (1 DROP)
     Route: 065
  10. HYALURONATE SODIUM [Concomitant]
     Active Substance: HYALURONATE SODIUM
     Indication: OPEN ANGLE GLAUCOMA
     Dosage: UNK, 10 MG/ML
     Route: 031
     Dates: start: 201209, end: 201209
  11. HYALURONATE SODIUM [Concomitant]
     Active Substance: HYALURONATE SODIUM
     Indication: INTRAOPERATIVE CARE

REACTIONS (7)
  - Pigment dispersion syndrome [Not Recovered/Not Resolved]
  - Pupillary disorder [Not Recovered/Not Resolved]
  - Intentional product use issue [Recovered/Resolved]
  - Toxicity to various agents [Not Recovered/Not Resolved]
  - Product use in unapproved indication [Recovered/Resolved]
  - Mydriasis [Not Recovered/Not Resolved]
  - Iris hypopigmentation [Recovering/Resolving]

NARRATIVE: CASE EVENT DATE: 201209
